FAERS Safety Report 8894118 (Version 2)
Quarter: 2012Q4

REPORT INFORMATION
  Report Type: 
  Country: US (occurrence: US)
  Receive Date: 20121108
  Receipt Date: 20121219
  Transmission Date: 20130627
  Serious: Yes (Death)
  Sender: FDA-Public Use
  Company Number: US-PFIZER INC-2012276154

PATIENT
  Age: 53 Year
  Sex: Male

DRUGS (9)
  1. XALKORI [Suspect]
     Indication: LUNG NEOPLASM MALIGNANT
     Dosage: 250 mg, 2x/day (1 capsule)
     Route: 048
     Dates: start: 20120227
  2. DILAUDID [Concomitant]
     Dosage: 4 mg, as needed
     Route: 048
     Dates: start: 20120222
  3. BABY ASPIRIN [Concomitant]
     Dosage: 81 mg, daily
     Route: 048
     Dates: start: 20120118
  4. FOLIC ACID [Concomitant]
     Dosage: UNK
  5. DIAZEPAM [Concomitant]
     Dosage: 10 mg, as needed
     Route: 048
     Dates: start: 20120919
  6. ONDANSETRON HYDROCHLORIDE [Concomitant]
     Dosage: as needed
     Route: 048
     Dates: start: 20120919
  7. ENOXAPARIN [Concomitant]
     Dosage: 100 mg, every 12 Hours
     Route: 058
     Dates: start: 20120815
  8. FENTANYL [Concomitant]
     Dosage: 150 ug, every 72 hours
     Route: 061
     Dates: start: 20120425
  9. OMEPRAZOLE MAGNESIUM [Concomitant]
     Dosage: 20 mg, daily
     Route: 048
     Dates: start: 20120222

REACTIONS (1)
  - Death [Fatal]
